FAERS Safety Report 11553493 (Version 1)
Quarter: 2015Q3

REPORT INFORMATION
  Report Type: Spontaneous
  Country: FR (occurrence: FR)
  Receive Date: 20150925
  Receipt Date: 20150925
  Transmission Date: 20151125
  Serious: Yes (Other)
  Sender: FDA-Public Use
  Company Number: FR-PFIZER INC-2015317186

PATIENT
  Age: 17 Year
  Sex: Female

DRUGS (1)
  1. ETHINYLESTRADIOL/LEVONORGESTREL [Suspect]
     Active Substance: ETHINYL ESTRADIOL\LEVONORGESTREL
     Indication: CONTRACEPTION
     Dosage: ETHINYLESTRADIOL 30 ?G, LEVONORGESTREL 150 ?G
     Route: 048

REACTIONS (2)
  - Progressive familial intrahepatic cholestasis [Recovered/Resolved]
  - Cholelithiasis [None]

NARRATIVE: CASE EVENT DATE: 200003
